FAERS Safety Report 21057303 (Version 3)
Quarter: 2022Q3

REPORT INFORMATION
  Report Type: Spontaneous
  Country: US (occurrence: US)
  Receive Date: 20220708
  Receipt Date: 20220719
  Transmission Date: 20221027
  Serious: No
  Sender: FDA-Public Use
  Company Number: US-BAUSCH-BL-2022-016883

PATIENT
  Age: 63 Year
  Sex: Male

DRUGS (4)
  1. TIMOPTIC [Suspect]
     Active Substance: TIMOLOL MALEATE
     Indication: Glaucoma
     Dosage: 1 DROP INTO EACH EYE THREE TIMES DAILY (7 YEARS AGO)
     Route: 047
     Dates: start: 2015
  2. TIMOPTIC [Suspect]
     Active Substance: TIMOLOL MALEATE
  3. COSOPT PF [Concomitant]
     Active Substance: DORZOLAMIDE HYDROCHLORIDE\TIMOLOL MALEATE
     Indication: Product used for unknown indication
  4. ZIOPTAN [Concomitant]
     Active Substance: TAFLUPROST
     Indication: Product used for unknown indication

REACTIONS (3)
  - Drug ineffective [Unknown]
  - Product packaging issue [Unknown]
  - Product quality issue [Unknown]

NARRATIVE: CASE EVENT DATE: 20210101
